FAERS Safety Report 23693677 (Version 2)
Quarter: 2024Q3

REPORT INFORMATION
  Report Type: Spontaneous
  Country: IT (occurrence: IT)
  Receive Date: 20240401
  Receipt Date: 20240701
  Transmission Date: 20241017
  Serious: Yes (Other)
  Sender: BRISTOL MYERS SQUIBB
  Company Number: IT-BRISTOL-MYERS SQUIBB COMPANY-2024-047959

PATIENT

DRUGS (1)
  1. LUSPATERCEPT [Suspect]
     Active Substance: LUSPATERCEPT
     Indication: Product used for unknown indication
     Dosage: DOSE : UNAV;     FREQ : UNAV

REACTIONS (1)
  - Arterial thrombosis [Unknown]
